FAERS Safety Report 25487495 (Version 1)
Quarter: 2025Q2

REPORT INFORMATION
  Report Type: Spontaneous
  Country: GB (occurrence: GB)
  Receive Date: 20250627
  Receipt Date: 20250627
  Transmission Date: 20250716
  Serious: Yes (Other)
  Sender: BAXTER
  Company Number: None

PATIENT
  Age: 42 Year
  Sex: Female

DRUGS (2)
  1. FUROSEMIDE [Suspect]
     Active Substance: FUROSEMIDE
     Route: 065
  2. TECHNESCAN MAG3 [Suspect]
     Active Substance: TECHNETIUM TC-99M TIATIDE
     Indication: Adverse drug reaction
     Route: 065
     Dates: start: 20250623, end: 20250623

REACTIONS (3)
  - Tachycardia [Recovered/Resolved]
  - Dizziness [Recovered/Resolved]
  - Urticaria [Not Recovered/Not Resolved]
